FAERS Safety Report 5256700-7 (Version None)
Quarter: 2007Q1

REPORT INFORMATION
  Report Type: 
  Country: None (occurrence: None)
  Receive Date: 20070306
  Receipt Date: 20070222
  Transmission Date: 20070707
  Serious: Yes (Other)
  Sender: FDA-Public Use
  Company Number: KR-PFIZER INC-2007014417

PATIENT
  Age: 58 Year
  Sex: Female

DRUGS (5)
  1. FLUCONAZOLE [Suspect]
     Indication: TINEA PEDIS
  2. AMLODIPINE [Concomitant]
  3. HYDROCHLOROTHIAZIDE [Concomitant]
  4. METOCLOPRAMIDE [Concomitant]
  5. LEVOSULPIRIDE [Concomitant]

REACTIONS (1)
  - GLOMERULONEPHRITIS MEMBRANOUS [None]
